FAERS Safety Report 13923774 (Version 8)
Quarter: 2022Q1

REPORT INFORMATION
  Report Type: Spontaneous
  Country: US (occurrence: US)
  Receive Date: 20170831
  Receipt Date: 20220106
  Transmission Date: 20220423
  Serious: No
  Sender: FDA-Public Use
  Company Number: US-PFIZER INC-2017332910

PATIENT
  Age: 80 Year
  Sex: Female
  Weight: 43 kg

DRUGS (4)
  1. XELJANZ XR [Suspect]
     Active Substance: TOFACITINIB CITRATE
     Indication: Rheumatoid arthritis
     Dosage: 11 MG, 1X/DAY
     Route: 048
     Dates: start: 201701
  2. XELJANZ XR [Suspect]
     Active Substance: TOFACITINIB CITRATE
     Indication: Arthritis
     Dosage: 11 MG, 1X/DAY
  3. METHOTREXATE [Suspect]
     Active Substance: METHOTREXATE
     Indication: Arthritis
     Dosage: 7.5 MG, WEEKLY (3 TABLETS ONCE A WEEK)
     Dates: start: 201705
  4. EVISTA [Concomitant]
     Active Substance: RALOXIFENE HYDROCHLORIDE
     Dosage: UNK

REACTIONS (10)
  - Sinus disorder [Not Recovered/Not Resolved]
  - Condition aggravated [Not Recovered/Not Resolved]
  - Cough [Not Recovered/Not Resolved]
  - Oropharyngeal pain [Recovering/Resolving]
  - Productive cough [Recovered/Resolved]
  - Herpes zoster [Recovered/Resolved]
  - Nasopharyngitis [Unknown]
  - Dysphonia [Unknown]
  - Influenza [Unknown]
  - Stress [Unknown]

NARRATIVE: CASE EVENT DATE: 20170801
